FAERS Safety Report 9158293 (Version 4)
Quarter: 2013Q2

REPORT INFORMATION
  Report Type: Report from Study
  Country: CA (occurrence: CA)
  Receive Date: 20130312
  Receipt Date: 20130605
  Transmission Date: 20140414
  Serious: Yes (Hospitalization, Other)
  Sender: FDA-Public Use
  Company Number: CA-ROCHE-1198968

PATIENT
  Age: 20 Year
  Sex: Female
  Weight: 60.8 kg

DRUGS (6)
  1. RITUXAN [Suspect]
     Indication: THROMBOTIC THROMBOCYTOPENIC PURPURA
     Route: 042
     Dates: start: 20130301, end: 20130403
  2. PREDNISONE [Concomitant]
  3. DALTEPARIN [Concomitant]
  4. FOLIC ACID [Concomitant]
  5. PANTOPRAZOLE [Concomitant]
  6. SEPTRA [Concomitant]

REACTIONS (11)
  - Thrombosis [Not Recovered/Not Resolved]
  - Chest pain [Unknown]
  - Dyspnoea [Unknown]
  - Device related infection [Unknown]
  - Pain in extremity [Recovered/Resolved]
  - Arthralgia [Recovered/Resolved]
  - Sensation of heaviness [Recovered/Resolved]
  - Gait disturbance [Recovered/Resolved]
  - Hot flush [Recovered/Resolved]
  - Pruritus [Not Recovered/Not Resolved]
  - Paraesthesia [Recovered/Resolved]
